FAERS Safety Report 5201453-1 (Version None)
Quarter: 2007Q1

REPORT INFORMATION
  Report Type: 
  Country: None (occurrence: None)
  Receive Date: 20070108
  Receipt Date: 20070102
  Transmission Date: 20070707
  Serious: Yes (Death, Hospitalization)
  Sender: FDA-Public Use
  Company Number: US-PFIZER INC-2006040636

PATIENT
  Sex: Female
  Weight: 85 kg

DRUGS (19)
  1. SUTENT [Suspect]
     Indication: RENAL CANCER METASTATIC
     Route: 048
     Dates: start: 20060118, end: 20060208
  2. CELLCEPT [Concomitant]
     Dosage: TEXT:UNKNOWN-FREQ:UNKNOWN
     Route: 048
  3. PROGRAF [Concomitant]
     Route: 048
  4. LASIX [Concomitant]
     Route: 048
  5. ATENOLOL [Concomitant]
     Route: 048
  6. GLYBURIDE [Concomitant]
     Route: 048
  7. LEVOTHYROXINE SODIUM [Concomitant]
     Route: 048
  8. ZAROXOLYN [Concomitant]
     Route: 048
  9. PREDNISONE TAB [Concomitant]
     Route: 048
  10. CARDURA [Concomitant]
     Route: 048
  11. ZOLOFT [Concomitant]
     Route: 048
  12. KEFLEX [Concomitant]
     Route: 048
  13. PERCOCET [Concomitant]
     Route: 048
  14. TYLENOL [Concomitant]
     Route: 048
  15. NEURONTIN [Concomitant]
  16. AMBIEN [Concomitant]
  17. FOSAMAX [Concomitant]
  18. VITAMIN CAP [Concomitant]
  19. LORAZEPAM [Concomitant]

REACTIONS (4)
  - HYPOGLYCAEMIA [None]
  - RENAL FAILURE [None]
  - RENAL FAILURE ACUTE [None]
  - SYNCOPE [None]
